FAERS Safety Report 24010961 (Version 1)
Quarter: 2024Q2

REPORT INFORMATION
  Report Type: Spontaneous
  Country: US (occurrence: None)
  Receive Date: 20240624
  Receipt Date: 20240624
  Transmission Date: 20240716
  Serious: Yes (Life-Threatening, Hospitalization)
  Sender: FDA-Public Use
  Company Number: None

PATIENT
  Age: 55 Year
  Sex: Female
  Weight: 76.95 kg

DRUGS (1)
  1. HYDROCHLOROTHIAZIDE\LOSARTAN [Suspect]
     Active Substance: HYDROCHLOROTHIAZIDE\LOSARTAN
     Indication: Hypertension
     Dosage: 90 TABLETS ORAL
     Route: 048
     Dates: start: 20240620, end: 20240624

REACTIONS (11)
  - Nausea [None]
  - Dizziness [None]
  - Chest pain [None]
  - Hypopnoea [None]
  - Tremor [None]
  - Dizziness [None]
  - Pyrexia [None]
  - Headache [None]
  - Dizziness [None]
  - Abdominal discomfort [None]
  - Blood potassium decreased [None]

NARRATIVE: CASE EVENT DATE: 20240622
